FAERS Safety Report 15192961 (Version 1)
Quarter: 2018Q3

REPORT INFORMATION
  Report Type: Spontaneous
  Country: FR (occurrence: FR)
  Receive Date: 20180725
  Receipt Date: 20180725
  Transmission Date: 20181010
  Serious: Yes (Hospitalization, Other)
  Sender: FDA-Public Use
  Company Number: FR-AMGEN-FRASP2018099701

PATIENT
  Age: 61 Year
  Sex: Male

DRUGS (2)
  1. TAGRISSO [Suspect]
     Active Substance: OSIMERTINIB
     Indication: NEOPLASM MALIGNANT
     Dosage: 80 MG, QD
     Route: 048
     Dates: start: 20170520, end: 20180618
  2. XGEVA [Suspect]
     Active Substance: DENOSUMAB
     Indication: PROPHYLAXIS
     Dosage: UNK UNK, QMO
     Route: 058
     Dates: start: 2016

REACTIONS (3)
  - Pulmonary embolism [Recovering/Resolving]
  - Cerebrovascular accident [Not Recovered/Not Resolved]
  - Ischaemia [Not Recovered/Not Resolved]

NARRATIVE: CASE EVENT DATE: 2018
